FAERS Safety Report 6262386-5 (Version None)
Quarter: 2009Q3

REPORT INFORMATION
  Report Type: 
  Country: None (occurrence: None)
  Receive Date: 20090709
  Receipt Date: 20090703
  Transmission Date: 20100115
  Serious: Yes (Disabling)
  Sender: FDA-Public Use
  Company Number: CA-JNJFOC-20090701382

PATIENT
  Age: 34 Year
  Sex: Female

DRUGS (3)
  1. RISPERDAL [Suspect]
     Indication: DRUG USE FOR UNKNOWN INDICATION
     Route: 065
  2. SEROQUEL [Suspect]
     Indication: DRUG USE FOR UNKNOWN INDICATION
     Route: 065
  3. SERZONE [Suspect]
     Indication: DRUG USE FOR UNKNOWN INDICATION
     Route: 065

REACTIONS (18)
  - ALOPECIA [None]
  - BLOOD PROLACTIN INCREASED [None]
  - DEPRESSION [None]
  - DISORIENTATION [None]
  - FIBROMYALGIA [None]
  - GASTROINTESTINAL MOTILITY DISORDER [None]
  - HAEMORRHAGIC DISORDER [None]
  - HEADACHE [None]
  - MEMORY IMPAIRMENT [None]
  - MIGRAINE [None]
  - MUSCLE DISORDER [None]
  - MUSCLE TIGHTNESS [None]
  - MYALGIA [None]
  - SCAR [None]
  - SKIN EXFOLIATION [None]
  - SUICIDAL IDEATION [None]
  - THINKING ABNORMAL [None]
  - WEIGHT INCREASED [None]
